FAERS Safety Report 14105689 (Version 2)
Quarter: 2017Q4

REPORT INFORMATION
  Report Type: Spontaneous
  Country: US (occurrence: US)
  Receive Date: 20171018
  Receipt Date: 20171024
  Transmission Date: 20180321
  Serious: Yes (Hospitalization, Other)
  Sender: FDA-Public Use
  Company Number: US-PFIZER INC-2017447745

PATIENT
  Age: 58 Year
  Sex: Male

DRUGS (18)
  1. LINZESS [Concomitant]
     Active Substance: LINACLOTIDE
     Dosage: 145 UG, 1X/DAY
     Route: 048
  2. FUROSEMIDE. [Concomitant]
     Active Substance: FUROSEMIDE
     Dosage: 20 MG, 1X/DAY
     Route: 048
  3. REMODULIN [Suspect]
     Active Substance: TREPROSTINIL
     Dosage: UNK
  4. SPIRONOLACTONE. [Concomitant]
     Active Substance: SPIRONOLACTONE
     Dosage: 25 MG, 2X/DAY
     Route: 048
  5. REVATIO [Suspect]
     Active Substance: SILDENAFIL CITRATE
     Indication: PULMONARY HYPERTENSION
     Dosage: 20 MG, UNK
  6. OMEPRAZOLE. [Concomitant]
     Active Substance: OMEPRAZOLE
     Dosage: 20 MG, DAILY
     Route: 048
  7. GENERLAC [Concomitant]
     Active Substance: LACTULOSE
     Dosage: UNK UNK, AS NEEDED, (10 GM/15ML SOLUTION 30 ML AS NEEDED ORALLY ONCE A DAY)
     Route: 048
  8. GABAPENTIN. [Concomitant]
     Active Substance: GABAPENTIN
     Dosage: 100 MG, UNK
     Route: 048
  9. TYVASO [Suspect]
     Active Substance: TREPROSTINIL
     Dosage: UNK
  10. LETAIRIS [Suspect]
     Active Substance: AMBRISENTAN
     Dosage: UNK
  11. AMITRIPTYLINE HCL [Concomitant]
     Active Substance: AMITRIPTYLINE
     Dosage: 50 MG, 1X/DAY, (AT BEDTIME )
     Route: 048
  12. DECARA [Concomitant]
     Dosage: 50000 IU, UNK
     Route: 048
  13. CENTRUM SELECT 50+ [Concomitant]
     Active Substance: VITAMINS
     Route: 048
  14. PROBIOTIC [Concomitant]
     Active Substance: PROBIOTICS NOS
     Route: 048
  15. MIDODRINE HCL [Concomitant]
     Active Substance: MIDODRINE HYDROCHLORIDE
     Dosage: 5 MG, 3X/DAY
     Route: 048
  16. XIFAXAN [Concomitant]
     Active Substance: RIFAXIMIN
     Dosage: 550 MG, 2X/DAY
     Route: 048
  17. OXYCODONE [Concomitant]
     Active Substance: OXYCODONE
     Dosage: 15 MG, UNK, (1 THREE TO  FOUR TIME DAILY)
  18. ASA [Concomitant]
     Active Substance: ASPIRIN
     Dosage: 81 MG, 1X/DAY

REACTIONS (9)
  - Haemoptysis [Unknown]
  - Hypoxia [Unknown]
  - Hypotension [Unknown]
  - Back pain [Unknown]
  - Condition aggravated [Unknown]
  - Chest pain [Unknown]
  - Drug ineffective [Unknown]
  - Dyspnoea [Unknown]
  - Cough [Unknown]

NARRATIVE: CASE EVENT DATE: 201206
